FAERS Safety Report 5888059-6 (Version None)
Quarter: 2008Q3

REPORT INFORMATION
  Report Type: 
  Country: None (occurrence: None)
  Receive Date: 20080918
  Receipt Date: 20080915
  Transmission Date: 20090109
  Serious: Yes (Death)
  Sender: FDA-Public Use
  Company Number: US-CELGENEUS-163-20785-08050247

PATIENT
  Sex: Male

DRUGS (4)
  1. THALOMID [Suspect]
     Indication: MULTIPLE MYELOMA
     Route: 048
     Dates: start: 20071101, end: 20080103
  2. THALOMID [Suspect]
     Route: 048
     Dates: start: 20080131
  3. THALOMID [Suspect]
     Route: 048
     Dates: start: 20080205, end: 20080227
  4. THALOMID [Suspect]
     Route: 048
     Dates: start: 20080305, end: 20080101

REACTIONS (2)
  - RESPIRATORY FAILURE [None]
  - THROMBOSIS [None]
